FAERS Safety Report 11256686 (Version 1)
Quarter: 2015Q3

REPORT INFORMATION
  Report Type: Spontaneous
  Country: US (occurrence: US)
  Receive Date: 20150709
  Receipt Date: 20150709
  Transmission Date: 20151125
  Serious: No
  Sender: FDA-Public Use
  Company Number: US-PURDUE-USA-2014-0118185

PATIENT
  Age: 43 Year
  Sex: Female
  Weight: 68.27 kg

DRUGS (4)
  1. BUTRANS [Suspect]
     Active Substance: BUPRENORPHINE
     Indication: SYSTEMIC LUPUS ERYTHEMATOSUS
  2. BUTRANS [Suspect]
     Active Substance: BUPRENORPHINE
     Indication: FIBROMYALGIA
     Dosage: 10 MCG/HR, WEEKLY
     Route: 062
     Dates: start: 201308
  3. BUTRANS [Suspect]
     Active Substance: BUPRENORPHINE
     Indication: INTERVERTEBRAL DISC PROTRUSION
  4. BUTRANS [Suspect]
     Active Substance: BUPRENORPHINE
     Indication: SPINAL COLUMN STENOSIS

REACTIONS (4)
  - Application site erosion [Unknown]
  - Application site pain [Unknown]
  - Breakthrough pain [Unknown]
  - Application site discolouration [Unknown]
